FAERS Safety Report 9705727 (Version 1)
Quarter: 2013Q4

REPORT INFORMATION
  Report Type: Spontaneous
  Country: US (occurrence: US)
  Receive Date: 20131122
  Receipt Date: 20131122
  Transmission Date: 20140711
  Serious: No
  Sender: FDA-Public Use
  Company Number: US-GILEAD-2008-0017835

PATIENT
  Sex: Female
  Weight: 89.81 kg

DRUGS (8)
  1. LETAIRIS [Suspect]
     Indication: PULMONARY ARTERIAL HYPERTENSION
     Route: 048
     Dates: start: 20080804
  2. FLOLAN [Concomitant]
     Dosage: CONTINUOUS
     Route: 042
  3. COUMADIN [Concomitant]
     Dosage: AT NIGHT
     Route: 048
  4. LASIX [Concomitant]
     Route: 048
  5. VICODIN [Concomitant]
     Route: 048
  6. IMODIUM [Concomitant]
     Route: 048
  7. AMBIEN [Concomitant]
     Route: 048
  8. POTASSIUM CHLORIDE [Concomitant]
     Route: 048

REACTIONS (3)
  - Vomiting [Unknown]
  - Nausea [Unknown]
  - Migraine [Unknown]
